FAERS Safety Report 6651874-5 (Version None)
Quarter: 2010Q1

REPORT INFORMATION
  Report Type: 
  Country: None (occurrence: None)
  Receive Date: 20100325
  Receipt Date: 20100315
  Transmission Date: 20100710
  Serious: Yes (Other)
  Sender: FDA-Public Use
  Company Number: PHHY2010US16829

PATIENT
  Age: 54 Year
  Sex: Male

DRUGS (1)
  1. PAMIDRONATE DISODIUM [Suspect]
     Indication: MULTIPLE MYELOMA
     Dosage: 90 MG, QMO
     Route: 042

REACTIONS (5)
  - BONE DISORDER [None]
  - BONE LESION [None]
  - ORAL MUCOSAL ERYTHEMA [None]
  - OSTEONECROSIS [None]
  - PAIN IN JAW [None]
